FAERS Safety Report 8589657-1 (Version None)
Quarter: 2012Q3

REPORT INFORMATION
  Report Type: 
  Country: None (occurrence: None)
  Receive Date: 20120813
  Receipt Date: 20120807
  Transmission Date: 20120928
  Serious: Yes (Death, Hospitalization)
  Sender: FDA-Public Use
  Company Number: FR-ASTRAZENECA-2012SE56109

PATIENT
  Age: 70 Year
  Sex: Male

DRUGS (9)
  1. RANITIDINE [Concomitant]
     Indication: GASTROOESOPHAGEAL REFLUX DISEASE
  2. DIPRIVAN [Suspect]
     Dosage: ONCE/SINGLE ADMINISTRATION
     Route: 042
     Dates: start: 20120702, end: 20120702
  3. XYLOCAINE [Concomitant]
     Route: 042
     Dates: start: 20120629, end: 20120629
  4. DIPRIVAN [Suspect]
     Route: 042
     Dates: start: 20120629, end: 20120629
  5. CELOCURINE [Concomitant]
     Route: 042
     Dates: start: 20120629, end: 20120629
  6. DIPRIVAN [Suspect]
     Indication: ANAESTHESIA
     Route: 042
     Dates: start: 20120622, end: 20120622
  7. ULTIVA [Concomitant]
     Route: 042
     Dates: start: 20120622, end: 20120622
  8. CELOCURINE [Concomitant]
     Route: 042
     Dates: start: 20120702, end: 20120702
  9. SUFENTANIL CITRATE [Concomitant]
     Indication: ANAESTHESIA
     Dosage: ONCE/SINGLE ADMINISTRATION
     Route: 042
     Dates: start: 20120702, end: 20120702

REACTIONS (6)
  - HAEMOPTYSIS [None]
  - ALANINE AMINOTRANSFERASE INCREASED [None]
  - ASPARTATE AMINOTRANSFERASE INCREASED [None]
  - HEPATOTOXICITY [None]
  - BLOOD ALKALINE PHOSPHATASE INCREASED [None]
  - GAMMA-GLUTAMYLTRANSFERASE INCREASED [None]
